FAERS Safety Report 4848090-6 (Version None)
Quarter: 2005Q4

REPORT INFORMATION
  Report Type: 
  Country: None (occurrence: None)
  Receive Date: 20051205
  Receipt Date: 20051205
  Transmission Date: 20060501
  Serious: Yes (Life-Threatening, Other)
  Sender: FDA-Public Use
  Company Number: None

PATIENT
  Age: 36 Year
  Sex: Female
  Weight: 52.1637 kg

DRUGS (2)
  1. LEVOXYL [Suspect]
     Indication: AUTOIMMUNE THYROIDITIS
     Dosage: 75MCG.   ONCE A DAY   PO
     Route: 048
  2. LEVOXYL [Suspect]
     Indication: AUTOIMMUNE THYROIDITIS
     Dosage: 100MCG.   ONCE A DAY   PO
     Route: 048

REACTIONS (8)
  - ALOPECIA [None]
  - CARDIAC DISORDER [None]
  - EMOTIONAL DISTRESS [None]
  - HEART RATE INCREASED [None]
  - MENSTRUAL DISORDER [None]
  - PAIN [None]
  - PALPITATIONS [None]
  - WEIGHT INCREASED [None]
